FAERS Safety Report 7039399-9 (Version None)
Quarter: 2010Q4

REPORT INFORMATION
  Report Type: 
  Country: None (occurrence: None)
  Receive Date: 20101012
  Receipt Date: 20091007
  Transmission Date: 20110411
  Serious: No
  Sender: FDA-Public Use
  Company Number: US-BRISTOL-MYERS SQUIBB COMPANY-14809180

PATIENT
  Age: 60 Year
  Sex: Male

DRUGS (1)
  1. ABILIFY [Suspect]
     Route: 042

REACTIONS (2)
  - INCORRECT ROUTE OF DRUG ADMINISTRATION [None]
  - NO ADVERSE EVENT [None]
